FAERS Safety Report 7969985-0 (Version None)
Quarter: 2011Q4

REPORT INFORMATION
  Report Type: 
  Country: None (occurrence: None)
  Receive Date: 20111122
  Receipt Date: 20110819
  Transmission Date: 20120403
  Serious: No
  Sender: FDA-Public Use
  Company Number: PHEH2011US02278

PATIENT
  Age: 50 Year
  Sex: Female
  Weight: 90.7 kg

DRUGS (12)
  1. SIMVASTATIN [Concomitant]
  2. BACLOFEN [Concomitant]
  3. ESTRACE [Concomitant]
  4. GILENYA [Suspect]
     Dosage: 0.5 MG/ONE CAP DAILY, ORAL
     Route: 048
  5. MIRAPEX [Concomitant]
  6. CYMBALTA [Concomitant]
  7. LISINOPRIL/HCTZ (HYDROCHLOROTHIAZIDE, LISINOPRIL) [Concomitant]
  8. VITAMIN D [Concomitant]
  9. VITAMIN B12 [Concomitant]
  10. KLONOPIN [Concomitant]
  11. TRAMADOL HYDROCHLORIDE [Concomitant]
  12. ZANAFLEX [Concomitant]

REACTIONS (4)
  - VISION BLURRED [None]
  - MUSCULAR WEAKNESS [None]
  - DIPLOPIA [None]
  - HYPOAESTHESIA [None]
